FAERS Safety Report 8524843-8 (Version None)
Quarter: 2012Q3

REPORT INFORMATION
  Report Type: 
  Country: None (occurrence: None)
  Receive Date: 20120720
  Receipt Date: 20120706
  Transmission Date: 20120928
  Serious: Yes (Hospitalization)
  Sender: FDA-Public Use
  Company Number: IT-009507513-1207ITA000675

PATIENT

DRUGS (1)
  1. REBETOL [Suspect]

REACTIONS (1)
  - INTERSTITIAL LUNG DISEASE [None]
